FAERS Safety Report 5027467-2 (Version None)
Quarter: 2006Q2

REPORT INFORMATION
  Report Type: 
  Country: None (occurrence: None)
  Receive Date: 20060501
  Receipt Date: 20060131
  Transmission Date: 20061013
  Serious: No
  Sender: FDA-Public Use
  Company Number: 200610608BWH

PATIENT
  Age: 69 Year
  Sex: Male

DRUGS (3)
  1. NEXAVAR [Suspect]
     Indication: NEOPLASM OF THYMUS
     Dosage: 400 MG, BID, ORAL
     Route: 048
     Dates: start: 20060125
  2. AVASTIN [Concomitant]
  3. ALIMTA [Concomitant]

REACTIONS (2)
  - DRY MOUTH [None]
  - DYSPHONIA [None]
